FAERS Safety Report 19939161 (Version 5)
Quarter: 2022Q1

REPORT INFORMATION
  Report Type: Spontaneous
  Country: BR (occurrence: BR)
  Receive Date: 20211011
  Receipt Date: 20220331
  Transmission Date: 20220423
  Serious: No
  Sender: FDA-Public Use
  Company Number: BR-NOVARTISPH-NVSC2021BR228277

PATIENT
  Sex: Female

DRUGS (2)
  1. FEMARA [Suspect]
     Active Substance: LETROZOLE
     Indication: Breast cancer
     Dosage: UNK (STARTED 02 YEARS AGO)
     Route: 065
     Dates: start: 202001
  2. FEMARA [Suspect]
     Active Substance: LETROZOLE
     Dosage: UNK
     Route: 065
     Dates: start: 202002

REACTIONS (9)
  - Back disorder [Unknown]
  - Cardiac disorder [Unknown]
  - Product packaging issue [Unknown]
  - Product design issue [Unknown]
  - Nausea [Unknown]
  - Nervousness [Unknown]
  - Anxiety [Unknown]
  - Malaise [Unknown]
  - Product colour issue [Unknown]
